FAERS Safety Report 17257929 (Version 4)
Quarter: 2025Q3

REPORT INFORMATION
  Report Type: Spontaneous
  Country: EU (occurrence: EU)
  Receive Date: 20200110
  Receipt Date: 20250910
  Transmission Date: 20251020
  Serious: Yes (Life-Threatening, Other)
  Sender: MYLAN
  Company Number: EU-PFM-2019-12061

PATIENT
  Age: 70 Year
  Sex: Male
  Weight: 96 kg

DRUGS (6)
  1. DOCETAXEL [Suspect]
     Active Substance: DOCETAXEL
     Indication: Non-small cell lung cancer
     Dates: start: 20160829, end: 20161003
  2. VINORELBINE [Suspect]
     Active Substance: VINORELBINE TARTRATE
     Indication: Non-small cell lung cancer
  3. VINORELBINE [Suspect]
     Active Substance: VINORELBINE TARTRATE
     Dates: start: 20161104, end: 20170920
  4. VINORELBINE [Suspect]
     Active Substance: VINORELBINE TARTRATE
     Dates: start: 20180425, end: 20181126
  5. CARBOPLATIN [Suspect]
     Active Substance: CARBOPLATIN
     Indication: Non-small cell lung cancer
  6. DICLOFENAC SODIUM [Concomitant]
     Active Substance: DICLOFENAC SODIUM
     Indication: Product used for unknown indication

REACTIONS (3)
  - Agranulocytosis [Unknown]
  - Cough [Unknown]
  - Dyspnoea [Unknown]
